FAERS Safety Report 17600039 (Version 3)
Quarter: 2022Q1

REPORT INFORMATION
  Report Type: Report from Study
  Country: JP (occurrence: JP)
  Receive Date: 20200330
  Receipt Date: 20220310
  Transmission Date: 20220424
  Serious: Yes (Other)
  Sender: FDA-Public Use
  Company Number: JP-SHIRE-JP202011378AA

PATIENT
  Age: 1 Year
  Sex: Male

DRUGS (29)
  1. VELAGLUCERASE ALFA [Suspect]
     Active Substance: VELAGLUCERASE ALFA
     Indication: Gaucher^s disease type II
     Dosage: 60 INTERNATIONAL UNIT, Q2WEEKS
     Route: 042
     Dates: start: 20190828
  2. INCREMIN [Concomitant]
     Indication: Product used for unknown indication
     Dosage: 4 MILLILITER
     Route: 048
  3. VALPROATE SODIUM [Concomitant]
     Active Substance: VALPROATE SODIUM
     Indication: Product used for unknown indication
     Dosage: 1.4-5 MILLILITER
     Route: 048
  4. VALPROATE SODIUM [Concomitant]
     Active Substance: VALPROATE SODIUM
     Dosage: 3-6 MILLILITER
     Route: 048
  5. LEVOCARNITINE [Concomitant]
     Active Substance: LEVOCARNITINE
     Indication: Prophylaxis
     Dosage: 1.4 MILLILITER
     Route: 065
  6. LEVOCARNITINE [Concomitant]
     Active Substance: LEVOCARNITINE
     Dosage: 5 MILLILITER
     Route: 065
  7. FAMOTIDINE [Concomitant]
     Active Substance: FAMOTIDINE
     Indication: Product used for unknown indication
     Dosage: 0.1 GRAM
     Route: 048
  8. WAKOBITAL [Concomitant]
     Indication: Sedation
     Dosage: 25 MILLILITER
     Route: 054
     Dates: start: 20190831, end: 20190907
  9. CERCINE [Concomitant]
     Active Substance: DIAZEPAM
     Indication: Sedation
     Dosage: 7.2 MILLIGRAM
     Route: 048
     Dates: start: 20190831, end: 20190907
  10. TRICLOFOS SODIUM [Concomitant]
     Active Substance: TRICLOFOS SODIUM
     Indication: Product used for unknown indication
     Dosage: 5 MILLILITER
     Route: 048
     Dates: start: 20190902, end: 20191029
  11. ACETAMINOPHEN [Concomitant]
     Active Substance: ACETAMINOPHEN
     Indication: Product used for unknown indication
     Dosage: 100 MILLIGRAM
     Route: 054
     Dates: start: 20190906, end: 20191029
  12. ACETAMINOPHEN [Concomitant]
     Active Substance: ACETAMINOPHEN
     Dosage: 100 MILLIGRAM
     Route: 054
     Dates: start: 20200514
  13. DIAZEPAM [Concomitant]
     Active Substance: DIAZEPAM
     Indication: Product used for unknown indication
     Dosage: 4 MILLIGRAM
     Route: 065
     Dates: start: 20191206
  14. RHINOJET [Concomitant]
     Indication: Product used for unknown indication
     Dosage: 2 MILLILITER
     Route: 050
     Dates: start: 20191213
  15. Glycyron [Concomitant]
     Indication: Product used for unknown indication
     Dosage: 1 DOSAGE FORM
     Route: 048
     Dates: start: 20200107
  16. RIVOTRIL [Concomitant]
     Active Substance: CLONAZEPAM
     Indication: Product used for unknown indication
     Dosage: 0.15-0.25 MILLIGRAM
     Route: 048
     Dates: start: 20200214
  17. ACYCLOVIR SODIUM [Concomitant]
     Active Substance: ACYCLOVIR SODIUM
     Indication: Infection
     Dosage: 105 MILLIGRAM
     Route: 042
     Dates: end: 20190829
  18. AMPICILLIN SODIUM\SULBACTAM SODIUM [Concomitant]
     Active Substance: AMPICILLIN SODIUM\SULBACTAM SODIUM
     Indication: Infection
     Dosage: 0.9 GRAM
     Route: 042
     Dates: end: 20190913
  19. AMPICILLIN SODIUM\SULBACTAM SODIUM [Concomitant]
     Active Substance: AMPICILLIN SODIUM\SULBACTAM SODIUM
     Dosage: 1.35 GRAM
     Route: 042
     Dates: start: 20200514, end: 20200518
  20. FUROSEMIDE [Concomitant]
     Active Substance: FUROSEMIDE
     Dosage: 0.8 MILLILITER
     Route: 042
     Dates: start: 20190829
  21. FENTANYL [Concomitant]
     Active Substance: FENTANYL
     Indication: Sedation
     Dosage: 0.03 MILLIGRAM
     Route: 042
     Dates: end: 20190903
  22. PIPERACILLIN SODIUM [Concomitant]
     Active Substance: PIPERACILLIN SODIUM
     Indication: Infection
     Dosage: 0.9 GRAM
     Route: 042
     Dates: start: 20190913, end: 20190917
  23. HYDROXYZINE HYDROCHLORIDE [Concomitant]
     Active Substance: HYDROXYZINE HYDROCHLORIDE
     Indication: Premedication
     Dosage: 10 MILLIGRAM
     Route: 042
     Dates: start: 20190828, end: 20190918
  24. SOLU-CORTEF [Concomitant]
     Active Substance: HYDROCORTISONE SODIUM SUCCINATE
     Indication: Premedication
     Dosage: 50 MILLIGRAM
     Route: 042
     Dates: start: 20190828, end: 20190918
  25. PROCATEROL HYDROCHLORIDE [Concomitant]
     Active Substance: PROCATEROL HYDROCHLORIDE
     Indication: Product used for unknown indication
     Dosage: 0.2 MILLILITER
     Route: 050
  26. CHLORAL HYDRATE [Concomitant]
     Active Substance: CHLORAL HYDRATE
     Indication: Product used for unknown indication
     Dosage: 500 MILLIGRAM
     Route: 054
     Dates: start: 20200514, end: 20200528
  27. DIETARY SUPPLEMENT\PROBIOTICS [Concomitant]
     Active Substance: DIETARY SUPPLEMENT\PROBIOTICS
     Indication: Product used for unknown indication
     Dosage: 1 GRAM
     Route: 048
     Dates: start: 20200702, end: 20200716
  28. THIOPENTAL [Concomitant]
     Active Substance: THIOPENTAL
     Indication: Sedation
     Dosage: 50 MILLIGRAM
     Route: 042
     Dates: start: 20200428, end: 20200501
  29. FOSPHENYTOIN SODIUM [Concomitant]
     Active Substance: FOSPHENYTOIN SODIUM
     Indication: Product used for unknown indication
     Dosage: 225 MILLIGRAM
     Route: 065
     Dates: start: 20200703

REACTIONS (5)
  - Respiratory arrest [Unknown]
  - Laryngospasm [Unknown]
  - Cyanosis [Recovered/Resolved]
  - Hepatic mass [Unknown]
  - Hepatic enzyme increased [Not Recovered/Not Resolved]

NARRATIVE: CASE EVENT DATE: 20191023
